FAERS Safety Report 6409080-5 (Version None)
Quarter: 2009Q4

REPORT INFORMATION
  Report Type: 
  Country: None (occurrence: None)
  Receive Date: 20091019
  Receipt Date: 20091019
  Transmission Date: 20100525
  Serious: Yes (Hospitalization)
  Sender: FDA-Public Use
  Company Number: None

PATIENT
  Age: 34 Year
  Sex: Male
  Weight: 94.3482 kg

DRUGS (2)
  1. DEPAKOTE [Suspect]
     Indication: MOOD SWINGS
     Dosage: 1 2
  2. PERPHANAZINE 8MG [Suspect]
     Indication: ANXIETY
     Dosage: 1 2

REACTIONS (1)
  - UNEVALUABLE EVENT [None]
